FAERS Safety Report 19824329 (Version 1)
Quarter: 2021Q3

REPORT INFORMATION
  Report Type: Spontaneous
  Country: RU (occurrence: RU)
  Receive Date: 20210913
  Receipt Date: 20210913
  Transmission Date: 20211014
  Serious: Yes (Other)
  Sender: FDA-Public Use
  Company Number: RU-SA-2021SA300080

PATIENT
  Age: 71 Year
  Sex: Female

DRUGS (1)
  1. TOUJEO [Suspect]
     Active Substance: INSULIN GLARGINE
     Dosage: 46 IU, QD
     Route: 058
     Dates: start: 20210902, end: 20210907

REACTIONS (1)
  - Diabetic metabolic decompensation [Recovered/Resolved]
